FAERS Safety Report 8958732 (Version 3)
Quarter: 2013Q1

REPORT INFORMATION
  Report Type: Spontaneous
  Country: US (occurrence: US)
  Receive Date: 20121212
  Receipt Date: 20130123
  Transmission Date: 20140127
  Serious: Yes (Other)
  Sender: FDA-Public Use
  Company Number: US-BAYER-2012-127945

PATIENT
  Age: 34 Year
  Sex: Female
  Weight: 82 kg

DRUGS (5)
  1. AVELOX [Suspect]
     Indication: SINUSITIS
     Dosage: 1 TABLET IN THE EVENING
     Route: 048
     Dates: start: 20051129, end: 20121129
  2. SINGULAIR [Concomitant]
  3. CETIRIZINE [Concomitant]
  4. IBUPROFEN [Concomitant]
  5. NUVARING [Concomitant]

REACTIONS (9)
  - Hypersensitivity [Recovered/Resolved]
  - Flushing [Recovered/Resolved]
  - Paraesthesia [Recovered/Resolved]
  - Urticaria [Recovered/Resolved]
  - Tremor [Recovered/Resolved]
  - Swelling face [Recovered/Resolved]
  - Lip swelling [Recovered/Resolved]
  - Eye swelling [Recovered/Resolved]
  - Photosensitivity reaction [Recovered/Resolved]
